FAERS Safety Report 11102221 (Version 1)
Quarter: 2015Q2

REPORT INFORMATION
  Report Type: Spontaneous
  Country: CA (occurrence: CA)
  Receive Date: 20150511
  Receipt Date: 20150511
  Transmission Date: 20150821
  Serious: Yes (Death)
  Sender: FDA-Public Use
  Company Number: CA-ROCHE-1572851

PATIENT
  Age: 19 Year
  Sex: Female
  Weight: 65 kg

DRUGS (12)
  1. ATIVAN [Suspect]
     Active Substance: LORAZEPAM
     Indication: PRODUCT USED FOR UNKNOWN INDICATION
     Route: 065
  2. STATEX (CANADA) [Concomitant]
     Indication: PRODUCT USED FOR UNKNOWN INDICATION
     Route: 065
  3. VIOXX [Concomitant]
     Active Substance: ROFECOXIB
     Indication: PRODUCT USED FOR UNKNOWN INDICATION
     Route: 065
  4. AMITRIPTYLINE HYDROCHLORIDE. [Suspect]
     Active Substance: AMITRIPTYLINE HYDROCHLORIDE
     Indication: PRODUCT USED FOR UNKNOWN INDICATION
     Route: 065
  5. BENZTROPINE [Concomitant]
     Active Substance: BENZTROPINE
     Indication: PRODUCT USED FOR UNKNOWN INDICATION
     Route: 065
  6. QUETIAPINE FUMARATE. [Suspect]
     Active Substance: QUETIAPINE FUMARATE
     Indication: PRODUCT USED FOR UNKNOWN INDICATION
     Route: 065
  7. ZYPREXA ZYDIS [Suspect]
     Active Substance: OLANZAPINE
     Indication: PRODUCT USED FOR UNKNOWN INDICATION
     Route: 065
  8. CITALOPRAM HYDROBROMIDE. [Suspect]
     Active Substance: CITALOPRAM HYDROBROMIDE
     Indication: PRODUCT USED FOR UNKNOWN INDICATION
     Route: 065
  9. ACETAMINOPHEN. [Concomitant]
     Active Substance: ACETAMINOPHEN
     Indication: PRODUCT USED FOR UNKNOWN INDICATION
     Route: 065
  10. DIAZEPAM. [Suspect]
     Active Substance: DIAZEPAM
     Indication: PRODUCT USED FOR UNKNOWN INDICATION
     Route: 065
  11. HALOPERIDOL. [Suspect]
     Active Substance: HALOPERIDOL
     Indication: PRODUCT USED FOR UNKNOWN INDICATION
     Route: 065
  12. TYLENOL #1 (CANADA) [Concomitant]
     Active Substance: ACETAMINOPHEN\CAFFEINE\CODEINE PHOSPHATE
     Indication: PRODUCT USED FOR UNKNOWN INDICATION
     Route: 065

REACTIONS (27)
  - Confusional state [Fatal]
  - Dyskinesia [Fatal]
  - Psychotic disorder [Fatal]
  - Abnormal behaviour [Fatal]
  - Anger [Fatal]
  - Depressed level of consciousness [Fatal]
  - Injury [Fatal]
  - Major depression [Fatal]
  - Asphyxia [Fatal]
  - Laceration [Fatal]
  - Drug withdrawal syndrome [Fatal]
  - Morbid thoughts [Fatal]
  - Mouth haemorrhage [Fatal]
  - Depersonalisation [Fatal]
  - Depressed mood [Fatal]
  - Irritability [Fatal]
  - Sleep disorder [Fatal]
  - Aggression [Fatal]
  - Cervical vertebral fracture [Fatal]
  - Completed suicide [Fatal]
  - Disinhibition [Fatal]
  - Gait disturbance [Fatal]
  - Affect lability [Fatal]
  - Face oedema [Fatal]
  - Personality disorder [Fatal]
  - Social avoidant behaviour [Fatal]
  - Suicidal ideation [Fatal]
